FAERS Safety Report 9255338 (Version 1)
Quarter: 2013Q2

REPORT INFORMATION
  Report Type: Spontaneous
  Country: US (occurrence: None)
  Receive Date: 20130419
  Receipt Date: 20130419
  Transmission Date: 20140414
  Serious: Yes (Other)
  Sender: FDA-Public Use
  Company Number: FK201301171

PATIENT
  Age: 53 Year
  Sex: Male

DRUGS (9)
  1. MORPHINE [Suspect]
     Indication: CENTRAL PAIN SYNDROME
     Route: 048
  2. HYDROCODONE [Suspect]
     Indication: CENTRAL PAIN SYNDROME
  3. ACETAMINOPHEN (PARACETAMOL) [Suspect]
     Indication: CENTRAL PAIN SYNDROME
  4. AMITRIPTYLINE (AMITRIPTYLINE) [Concomitant]
  5. GABAPENTIN (GABAPENTIN) [Concomitant]
  6. PREGABALIN (PREGABALIN) [Concomitant]
  7. NORTRIPTYLINE (NORTRIPTYLINE) [Concomitant]
  8. FENTANYL (FENTANYL) [Concomitant]
  9. BUPRENORPHINE [Suspect]

REACTIONS (3)
  - Cognitive disorder [None]
  - Emotional distress [None]
  - Activities of daily living impaired [None]
